FAERS Safety Report 5401187-4 (Version None)
Quarter: 2007Q3

REPORT INFORMATION
  Report Type: 
  Country: None (occurrence: None)
  Receive Date: 20070731
  Receipt Date: 20070720
  Transmission Date: 20080115
  Serious: Yes (Hospitalization)
  Sender: FDA-Public Use
  Company Number: PHHO2007BR05973

PATIENT
  Age: 20 Year
  Sex: Female
  Weight: 45 kg

DRUGS (3)
  1. ZELNORM [Suspect]
     Indication: GASTROINTESTINAL DISORDER
     Dosage: 1 TABLET AM AND PM
     Route: 048
     Dates: start: 20070313, end: 20070321
  2. PAROXETINE [Concomitant]
  3. NOVIAL [Concomitant]

REACTIONS (13)
  - ANAEMIA [None]
  - FULL BLOOD COUNT ABNORMAL [None]
  - GASTRITIS [None]
  - HEPATIC PAIN [None]
  - HEPATOMEGALY [None]
  - JOINT SWELLING [None]
  - LIVER DISORDER [None]
  - LUNG INFILTRATION [None]
  - OEDEMA PERIPHERAL [None]
  - PAIN IN EXTREMITY [None]
  - PNEUMONIA [None]
  - PYREXIA [None]
  - RASH [None]
